FAERS Safety Report 4899908-2 (Version None)
Quarter: 2006Q1

REPORT INFORMATION
  Report Type: 
  Country: None (occurrence: None)
  Receive Date: 20060118
  Receipt Date: 20050916
  Transmission Date: 20060701
  Serious: No
  Sender: FDA-Public Use
  Company Number: 2005001830

PATIENT
  Age: 74 Year
  Sex: Female
  Weight: 58.9676 kg

DRUGS (6)
  1. TARCEVA [Suspect]
     Indication: NON-SMALL CELL LUNG CANCER
     Dosage: 150 MG (QD), ORAL ; SEE IMAGE
     Route: 048
     Dates: start: 20050617, end: 20050804
  2. TARCEVA [Suspect]
     Indication: NON-SMALL CELL LUNG CANCER
     Dosage: 150 MG (QD), ORAL ; SEE IMAGE
     Route: 048
     Dates: start: 20050825, end: 20050902
  3. TARCEVA [Suspect]
     Indication: NON-SMALL CELL LUNG CANCER
     Dosage: 150 MG (QD), ORAL ; SEE IMAGE
     Route: 048
     Dates: start: 20050914
  4. THYROID TAB [Concomitant]
  5. MULTIVITAMIN [Concomitant]
  6. GLUCOSAMINE/CHONDROITIN (GLUCOSAMINE W/CHONDROITIN SULFATES) [Concomitant]

REACTIONS (3)
  - INSOMNIA [None]
  - NASAL DRYNESS [None]
  - RASH [None]
